FAERS Safety Report 12224036 (Version 1)
Quarter: 2016Q1

REPORT INFORMATION
  Report Type: Spontaneous
  Country: US (occurrence: US)
  Receive Date: 20160330
  Receipt Date: 20160330
  Transmission Date: 20160526
  Serious: Yes (Hospitalization, Other)
  Sender: FDA-Public Use
  Company Number: US-BAUSCH-BL-2016-007316

PATIENT
  Age: 60 Year
  Sex: Male
  Weight: 108.96 kg

DRUGS (7)
  1. ASPIRIN 81 [Concomitant]
     Active Substance: ASPIRIN
     Indication: PRODUCT USED FOR UNKNOWN INDICATION
  2. IRON [Concomitant]
     Active Substance: IRON
     Indication: HAEMORRHAGE
     Route: 048
     Dates: start: 201507
  3. XIFAXAN [Suspect]
     Active Substance: RIFAXIMIN
     Indication: HEPATIC FAILURE
     Route: 048
     Dates: start: 201504, end: 201507
  4. LACTULOSE. [Concomitant]
     Active Substance: LACTULOSE
     Indication: HEPATIC FAILURE
     Route: 048
  5. LIPITOR [Concomitant]
     Active Substance: ATORVASTATIN CALCIUM
     Indication: BLOOD CHOLESTEROL
     Route: 048
     Dates: start: 201509
  6. ZINC [Concomitant]
     Active Substance: ZINC\ZINC CHLORIDE
     Indication: BLOOD ZINC DECREASED
     Route: 048
     Dates: start: 201507
  7. ZOLOFT [Concomitant]
     Active Substance: SERTRALINE HYDROCHLORIDE
     Indication: DEPRESSION
     Route: 048
     Dates: start: 201507

REACTIONS (9)
  - Pain [Unknown]
  - Haematemesis [Unknown]
  - Pyrexia [Recovered/Resolved]
  - Urinary tract infection [Recovered/Resolved]
  - Dizziness [Recovered/Resolved]
  - Cerebrovascular accident [Unknown]
  - Ammonia increased [Unknown]
  - Contusion [Unknown]
  - Fall [Unknown]

NARRATIVE: CASE EVENT DATE: 201506
